FAERS Safety Report 9456552 (Version 2)
Quarter: 2013Q4

REPORT INFORMATION
  Report Type: Spontaneous
  Country: US (occurrence: US)
  Receive Date: 20130813
  Receipt Date: 20131028
  Transmission Date: 20140711
  Serious: No
  Sender: FDA-Public Use
  Company Number: US-CELGENEUS-163-21880-13081536

PATIENT
  Age: 62 Year
  Sex: Male
  Weight: 116.22 kg

DRUGS (10)
  1. REVLIMID [Suspect]
     Indication: PLASMA CELL MYELOMA
     Dosage: 25 MILLIGRAM
     Route: 048
     Dates: start: 20091111
  2. REVLIMID [Suspect]
     Dosage: 15 - 10 - 15MG
     Route: 048
     Dates: start: 201010
  3. REVLIMID [Suspect]
     Dosage: 10 MILLIGRAM
     Route: 048
     Dates: start: 201305, end: 20130801
  4. ACTOS [Concomitant]
     Indication: DIABETES MELLITUS
     Route: 048
  5. PRAVACHOL [Concomitant]
     Indication: HYPERLIPIDAEMIA
     Route: 048
  6. GLUCOPHAGE [Concomitant]
     Indication: DIABETES MELLITUS
     Route: 065
  7. LASIX [Concomitant]
     Indication: HYPERTENSION
     Route: 048
  8. AMARYL [Concomitant]
     Indication: DIABETES MELLITUS
     Route: 048
  9. AZOR [Concomitant]
     Indication: HYPERTENSION
     Dosage: 10 - 20MG
     Route: 048
  10. BYETTA [Concomitant]
     Indication: DIABETES MELLITUS
     Route: 065

REACTIONS (1)
  - Plasma cell myeloma [Not Recovered/Not Resolved]
